FAERS Safety Report 15391271 (Version 1)
Quarter: 2018Q3

REPORT INFORMATION
  Report Type: Spontaneous
  Country: US (occurrence: US)
  Receive Date: 20180910
  Receipt Date: 20180910
  Transmission Date: 20181010
  Serious: Yes (Hospitalization)
  Sender: FDA-Public Use
  Company Number: None

PATIENT
  Age: 82 Year
  Sex: Female

DRUGS (16)
  1. PROLIA [Concomitant]
     Active Substance: DENOSUMAB
  2. ALBUTEROL. [Concomitant]
     Active Substance: ALBUTEROL
  3. VIT C+D [Concomitant]
  4. COZAAR [Concomitant]
     Active Substance: LOSARTAN POTASSIUM
  5. HYDROCHLOROT [Concomitant]
     Active Substance: HYDROCHLOROTHIAZIDE
  6. OMEGA3 [Concomitant]
  7. IBRANCE [Suspect]
     Active Substance: PALBOCICLIB
     Indication: BREAST CANCER FEMALE
     Route: 048
     Dates: start: 20171207
  8. SPIRIVA [Concomitant]
     Active Substance: TIOTROPIUM BROMIDE MONOHYDRATE
  9. PRAVACHOL [Concomitant]
     Active Substance: PRAVASTATIN SODIUM
  10. MONUROL [Concomitant]
     Active Substance: FOSFOMYCIN TROMETHAMINE
  11. SYMBICORT [Concomitant]
     Active Substance: BUDESONIDE\FORMOTEROL FUMARATE DIHYDRATE
  12. FASLODEX [Concomitant]
     Active Substance: FULVESTRANT
  13. GLUCOS/CHOND [Concomitant]
  14. ASPIRIN. [Concomitant]
     Active Substance: ASPIRIN
  15. PREDNISONE. [Concomitant]
     Active Substance: PREDNISONE
  16. VITAMIN B12 [Concomitant]
     Active Substance: CYANOCOBALAMIN

REACTIONS (3)
  - Lung infection [None]
  - Alopecia [None]
  - Chronic obstructive pulmonary disease [None]
